FAERS Safety Report 4344305-1 (Version None)
Quarter: 2004Q2

REPORT INFORMATION
  Report Type: 
  Country: None (occurrence: None)
  Receive Date: 20040420
  Receipt Date: 20040409
  Transmission Date: 20050107
  Serious: Yes (Death)
  Sender: FDA-Public Use
  Company Number: JP-SHR-04-023787

PATIENT
  Age: 65 Year
  Sex: Male
  Weight: 54 kg

DRUGS (6)
  1. FLUDARA [Suspect]
     Indication: CHRONIC LYMPHOCYTIC LEUKAEMIA
     Dosage: 30 MG, CYCLE X 5, IV
     Route: 042
     Dates: start: 20010830, end: 20010903
  2. FLUDARA [Suspect]
     Indication: CHRONIC LYMPHOCYTIC LEUKAEMIA
     Dosage: 30 MG, CYCLE X 5, IV
     Route: 042
     Dates: start: 20010927, end: 20011001
  3. FLUDARA [Suspect]
     Indication: CHRONIC LYMPHOCYTIC LEUKAEMIA
     Dosage: 30 MG, CYCLE X 5, IV
     Route: 042
     Dates: start: 20011025, end: 20011029
  4. FLUDARA [Suspect]
     Indication: CHRONIC LYMPHOCYTIC LEUKAEMIA
     Dosage: 30 MG, CYCLE X 5, IV
     Route: 042
     Dates: start: 20011121, end: 20011125
  5. FLUDARA [Suspect]
     Indication: CHRONIC LYMPHOCYTIC LEUKAEMIA
     Dosage: 30 MG, CYCLE X 5, IV
     Route: 042
     Dates: start: 20011219, end: 20011223
  6. FLUDARA [Suspect]
     Indication: CHRONIC LYMPHOCYTIC LEUKAEMIA
     Dosage: 30 MG, CYCLE X 5, IV
     Route: 042
     Dates: start: 20020116, end: 20020120

REACTIONS (1)
  - CARDIO-RESPIRATORY ARREST [None]
